FAERS Safety Report 13936785 (Version 1)
Quarter: 2017Q3

REPORT INFORMATION
  Report Type: Report from Study
  Country: IT (occurrence: IT)
  Receive Date: 20170905
  Receipt Date: 20170905
  Transmission Date: 20171127
  Serious: Yes (Death, Other)
  Sender: FDA-Public Use
  Company Number: IT-ROCHE-1989413

PATIENT
  Age: 62 Year
  Sex: Female

DRUGS (2)
  1. ALTEPLASE. [Suspect]
     Active Substance: ALTEPLASE
     Indication: PULMONARY EMBOLISM
     Dosage: 10-MG BOLUS DOSE PLUS 50 MG IN HOUR (H) 1 AND 40 MG IN H 2?THROUGH PERIPHERAL VEIN
     Route: 042
  2. HEPARIN [Suspect]
     Active Substance: HEPARIN SODIUM
     Indication: PULMONARY EMBOLISM
     Route: 040

REACTIONS (3)
  - Retroperitoneal haemorrhage [Fatal]
  - Melaena [Unknown]
  - Cardiac tamponade [Unknown]
